FAERS Safety Report 17137266 (Version 1)
Quarter: 2019Q4

REPORT INFORMATION
  Report Type: Spontaneous
  Country: US (occurrence: US)
  Receive Date: 20191210
  Receipt Date: 20191210
  Transmission Date: 20200122
  Serious: Yes (Hospitalization)
  Sender: FDA-Public Use
  Company Number: US-SAMSUNG BIOEPIS-SB-2019-36524

PATIENT
  Age: 67 Year
  Sex: Female

DRUGS (1)
  1. RENFLEXIS [Suspect]
     Active Substance: INFLIXIMAB-ABDA
     Indication: COLITIS ULCERATIVE
     Dosage: UNKNOWN
     Route: 065

REACTIONS (3)
  - Influenza [Unknown]
  - Acute respiratory distress syndrome [Unknown]
  - Tachycardia [Not Recovered/Not Resolved]
